FAERS Safety Report 9761544 (Version 1)
Quarter: 2013Q4

REPORT INFORMATION
  Report Type: Spontaneous
  Country: US (occurrence: US)
  Receive Date: 20131216
  Receipt Date: 20131216
  Transmission Date: 20140711
  Serious: No
  Sender: FDA-Public Use
  Company Number: US-ABBVIE-13P-163-1098521-00

PATIENT
  Age: 70 Year
  Sex: Female

DRUGS (2)
  1. PROMETRIUM [Suspect]
     Indication: MENOPAUSAL SYMPTOMS
  2. WILD YAM [Concomitant]
     Indication: MENOPAUSAL SYMPTOMS

REACTIONS (1)
  - Abnormal dreams [Unknown]
